FAERS Safety Report 8185048-6 (Version None)
Quarter: 2012Q1

REPORT INFORMATION
  Report Type: 
  Country: None (occurrence: None)
  Receive Date: 20120305
  Receipt Date: 20120302
  Transmission Date: 20120608
  Serious: Yes (Hospitalization)
  Sender: FDA-Public Use
  Company Number: BE-ABBOTT-12P-013-0905910-00

PATIENT
  Sex: Male
  Weight: 80 kg

DRUGS (2)
  1. ARAVA [Concomitant]
     Indication: PRODUCT USED FOR UNKNOWN INDICATION
     Dosage: 10 MG DAILY
     Dates: start: 20080101
  2. HUMIRA [Suspect]
     Indication: ANKYLOSING SPONDYLITIS
     Dates: start: 20090423, end: 20110831

REACTIONS (3)
  - INTERVERTEBRAL DISC PROTRUSION [None]
  - VERTEBRAL FORAMINAL STENOSIS [None]
  - ANKYLOSING SPONDYLITIS [None]
